FAERS Safety Report 14248771 (Version 1)
Quarter: 2017Q4

REPORT INFORMATION
  Report Type: Report from Study
  Country: US (occurrence: US)
  Receive Date: 20171204
  Receipt Date: 20171204
  Transmission Date: 20180321
  Serious: Yes (Other)
  Sender: FDA-Public Use
  Company Number: US-PFIZER INC-2017505876

PATIENT

DRUGS (3)
  1. INTERLEUKIN-2 [Suspect]
     Active Substance: ALDESLEUKIN
     Dosage: 720000 IU/KG, 3X/DAY (EVERY 8 HOURS)
     Route: 042
  2. CYCLOPHOSPHAMIDE. [Suspect]
     Active Substance: CYCLOPHOSPHAMIDE
     Dosage: 60 MG/KG, CYCLIC(PER DAY FOR 2 DAYS)
  3. FLUDARABINE PHOSPHATE. [Suspect]
     Active Substance: FLUDARABINE PHOSPHATE
     Dosage: 25 MG/M2, CYCLIC(PER DAY FOR 5 DAYS)

REACTIONS (3)
  - Alanine aminotransferase increased [Recovered/Resolved]
  - Blood creatinine increased [Recovered/Resolved]
  - Aspartate aminotransferase increased [Recovered/Resolved]
